FAERS Safety Report 7709275-4 (Version None)
Quarter: 2011Q3

REPORT INFORMATION
  Report Type: 
  Country: None (occurrence: None)
  Receive Date: 20110825
  Receipt Date: 20110822
  Transmission Date: 20111222
  Serious: Yes (Life-Threatening, Hospitalization, Other)
  Sender: FDA-Public Use
  Company Number: PHEH2011US02313

PATIENT
  Age: 52 Year
  Sex: Female
  Weight: 128 kg

DRUGS (16)
  1. NAPROXEN [Concomitant]
     Indication: OSTEOARTHRITIS
     Dosage: UNK UKN, UNK
  2. LORAZEPAM [Concomitant]
     Indication: PANIC DISORDER
     Dosage: 3 MG,DAILY
     Dates: start: 20060101
  3. INTERFERON BETA-1B [Suspect]
     Indication: MULTIPLE SCLEROSIS
     Dosage: UNK UKN, UNK
     Route: 058
     Dates: start: 20040101
  4. IBUPROFEN [Concomitant]
     Indication: OSTEONECROSIS
     Dosage: UNK UKN, UNK
  5. METOCLOPRAMIDE [Concomitant]
     Indication: GASTROOESOPHAGEAL REFLUX DISEASE
     Dosage: UNK UKN, UNK
  6. OMEPRAZOLE [Concomitant]
     Indication: GASTROOESOPHAGEAL REFLUX DISEASE
     Dosage: UNK UKN, UNK
  7. AVONEX [Concomitant]
     Indication: MULTIPLE SCLEROSIS
     Dosage: 30 MCG/0.5 ML WEEKLY
     Route: 030
     Dates: start: 20051101
  8. ESOMEPRAZOLE MAGNESIUM [Concomitant]
     Indication: GASTROOESOPHAGEAL REFLUX DISEASE
     Dosage: UNK UKN, UNK
  9. MITOXANTRONE [Concomitant]
     Indication: MULTIPLE SCLEROSIS
     Dosage: UNK UKN, UNK
  10. ALPRAZOLAM [Concomitant]
     Indication: PANIC DISORDER
     Dosage: 1.5 MG, DAILY
     Route: 048
     Dates: start: 20031002
  11. FLUOXETINE [Concomitant]
     Indication: MAJOR DEPRESSION
     Dosage: 60 MG, DAILY
     Route: 048
     Dates: start: 20110518
  12. CLONAZEPAM [Concomitant]
     Indication: PANIC DISORDER
     Dosage: UNK UKN, UNK
  13. RANITIDINE [Concomitant]
     Indication: GASTROOESOPHAGEAL REFLUX DISEASE
     Dosage: 300 MG, DAILY
     Route: 048
     Dates: start: 20010101
  14. NIFEDIPINE [Concomitant]
     Indication: AORTIC DISSECTION
     Dosage: UNK UKN, UNK
  15. PREVACID [Concomitant]
     Indication: GASTROOESOPHAGEAL REFLUX DISEASE
     Dosage: UNK UKN, UNK
  16. VENLAFAXINE [Concomitant]
     Indication: GENERALISED ANXIETY DISORDER
     Dosage: UNK UKN, UNK

REACTIONS (3)
  - DEPRESSED MOOD [None]
  - ANHEDONIA [None]
  - DEPRESSION [None]
